FAERS Safety Report 8828781 (Version 1)
Quarter: 2012Q4

REPORT INFORMATION
  Report Type: 
  Country: FR (occurrence: FR)
  Receive Date: 20121008
  Receipt Date: 20121008
  Transmission Date: 20130627
  Serious: Yes (Death, Hospitalization)
  Sender: FDA-Public Use
  Company Number: FR-ASTRAZENECA-2012SE76333

PATIENT
  Age: 29311 Day
  Sex: Male

DRUGS (13)
  1. XEROQUEL [Suspect]
     Route: 048
  2. MOTILIUM [Suspect]
     Route: 048
     Dates: end: 20120504
  3. MOTILIUM [Suspect]
     Route: 048
     Dates: start: 20120505, end: 20120505
  4. CORDARONE [Suspect]
     Route: 048
  5. CRESTOR [Concomitant]
     Route: 048
     Dates: end: 20120416
  6. EBIXA [Concomitant]
     Route: 048
  7. RISPERDALORO [Concomitant]
     Route: 048
     Dates: start: 20120430, end: 20120503
  8. VALIUM [Concomitant]
     Dates: end: 20120429
  9. VALIUM [Concomitant]
     Dates: start: 20120430
  10. TERCIAN [Concomitant]
     Route: 048
     Dates: start: 20120430, end: 20120502
  11. TAHOR [Concomitant]
     Dates: start: 20120417
  12. IMOVANE [Concomitant]
  13. TIAPRIDAL [Concomitant]
     Dates: end: 20120430

REACTIONS (7)
  - Pneumonia aspiration [Fatal]
  - Sepsis [Fatal]
  - Electrocardiogram QT prolonged [Unknown]
  - Cardiac failure acute [Recovered/Resolved]
  - Oxygen saturation decreased [Unknown]
  - Tachycardia [Unknown]
  - Vomiting [Unknown]
